FAERS Safety Report 7821210-7 (Version None)
Quarter: 2011Q4

REPORT INFORMATION
  Report Type: 
  Country: None (occurrence: None)
  Receive Date: 20111018
  Receipt Date: 20111012
  Transmission Date: 20120403
  Serious: Yes (Other)
  Sender: FDA-Public Use
  Company Number: CHPA2011US14076

PATIENT
  Age: 86 Year
  Sex: Female

DRUGS (6)
  1. TRANSDERM SCOP [Suspect]
     Indication: DIZZINESS
     Dosage: 1 DF, Q72H
     Route: 062
     Dates: start: 20110101
  2. TRANSDERM SCOP [Suspect]
     Indication: BALANCE DISORDER
  3. VITAMIN B-12 [Concomitant]
     Indication: PERNICIOUS ANAEMIA
     Dosage: UNK DF, QMO
  4. ATACAND [Concomitant]
     Indication: HYPERTENSION
     Dosage: UNK DF, QD
     Route: 048
  5. LABETALOL HCL [Concomitant]
     Indication: HYPERTENSION
     Dosage: UNK DF, QD
     Route: 048
  6. LEVOTHYROXINE SODIUM [Concomitant]
     Indication: HYPOTHYROIDISM
     Dosage: UNK DF, QD
     Route: 048

REACTIONS (6)
  - AMNESIA [None]
  - OFF LABEL USE [None]
  - VOMITING [None]
  - DISORIENTATION [None]
  - DRY MOUTH [None]
  - CONDITION AGGRAVATED [None]
